FAERS Safety Report 7032327-1 (Version None)
Quarter: 2010Q4

REPORT INFORMATION
  Report Type: 
  Country: None (occurrence: None)
  Receive Date: 20101007
  Receipt Date: 20100625
  Transmission Date: 20110411
  Serious: Yes (Death, Hospitalization)
  Sender: FDA-Public Use
  Company Number: ZA-BRISTOL-MYERS SQUIBB COMPANY-15166655

PATIENT
  Age: 51 Year
  Sex: Male
  Weight: 65 kg

DRUGS (1)
  1. CETUXIMAB [Suspect]
     Indication: NON-SMALL CELL LUNG CANCER
     Dosage: STRENGTH: 5 MG/ML REC INF: 10JUN10. TOTAL:24
     Route: 042
     Dates: start: 20091124, end: 20100610

REACTIONS (2)
  - DEEP VEIN THROMBOSIS [None]
  - MALIGNANT NEOPLASM PROGRESSION [None]
